FAERS Safety Report 9709646 (Version 2)
Quarter: 2014Q1

REPORT INFORMATION
  Report Type: Report from Study
  Country: BR (occurrence: BR)
  Receive Date: 20131126
  Receipt Date: 20140131
  Transmission Date: 20141002
  Serious: Yes (Death, Life-Threatening, Hospitalization, Other)
  Sender: FDA-Public Use
  Company Number: PHHY2013BR134468

PATIENT
  Age: 65 Year
  Sex: Female
  Weight: 46 kg

DRUGS (3)
  1. FORASEQ [Suspect]
     Indication: EMPHYSEMA
     Dosage: TWICE A DAY
     Route: 055
     Dates: start: 2005
  2. ONBREZ [Suspect]
     Indication: EMPHYSEMA
     Dosage: ONCE A DAY
     Dates: start: 2010, end: 201105
  3. SPIRIVA [Concomitant]
     Indication: EMPHYSEMA
     Dosage: UNK
     Dates: start: 2010, end: 201106

REACTIONS (17)
  - Emphysema [Fatal]
  - Respiratory failure [Fatal]
  - Cardiac arrest [Unknown]
  - Cachexia [Unknown]
  - Blood pressure decreased [Unknown]
  - Dyspnoea [Unknown]
  - Swelling [Unknown]
  - Mobility decreased [Unknown]
  - Intestinal obstruction [Unknown]
  - Gastrointestinal pain [Unknown]
  - Respiratory tract infection [Unknown]
  - Secretion discharge [Unknown]
  - Decubitus ulcer [Unknown]
  - Ulcer [Unknown]
  - Colitis [Unknown]
  - Spinal pain [Unknown]
  - Headache [Unknown]
